FAERS Safety Report 19208160 (Version 1)
Quarter: 2021Q2

REPORT INFORMATION
  Report Type: Spontaneous
  Country: CH (occurrence: CH)
  Receive Date: 20210503
  Receipt Date: 20210503
  Transmission Date: 20210717
  Serious: Yes (Other)
  Sender: FDA-Public Use
  Company Number: CH-TEVA-2021-CH-1906549

PATIENT
  Age: 24 Year
  Sex: Female

DRUGS (31)
  1. VIMPAT [Suspect]
     Active Substance: LACOSAMIDE
     Dosage: 200 MG
     Route: 048
     Dates: start: 20210101
  2. PREDNISONE. [Concomitant]
     Active Substance: PREDNISONE
     Dates: start: 20210112
  3. ONDANSETRON [Concomitant]
     Active Substance: ONDANSETRON
     Dosage: AS NECESSARY
     Dates: start: 20210317
  4. SEVREDOL [Concomitant]
     Active Substance: MORPHINE
     Dates: start: 20210410, end: 20210410
  5. DAFALGAN [Interacting]
     Active Substance: ACETAMINOPHEN
     Dosage: 1000 MG
     Route: 048
     Dates: start: 20210110, end: 20210126
  6. ORFIRIL [Concomitant]
     Active Substance: VALPROATE SODIUM
     Dates: start: 20210102, end: 20210111
  7. PRIVIGEN [Concomitant]
     Active Substance: HUMAN IMMUNOGLOBULIN G
     Dates: start: 20210331, end: 20210404
  8. RISPERDAL [Concomitant]
     Active Substance: RISPERIDONE
     Dates: start: 20210331, end: 20210331
  9. PURSANA [Concomitant]
     Active Substance: FIG FRUIT OIL\SORBITOL
     Dates: start: 20210318, end: 20210318
  10. DAFALGAN [Interacting]
     Active Substance: ACETAMINOPHEN
     Dosage: 1000 MG
     Route: 048
     Dates: start: 20210405, end: 20210408
  11. ATORVASTATINE [Concomitant]
     Active Substance: ATORVASTATIN
     Dates: start: 20201230, end: 20210107
  12. QUETIAPIN [Suspect]
     Active Substance: QUETIAPINE
     Dosage: 12.5 MG
     Route: 048
     Dates: start: 20210401
  13. LEVETIRACETAM. [Suspect]
     Active Substance: LEVETIRACETAM
     Dosage: 500 MG
     Route: 048
     Dates: start: 20210401
  14. IRFEN [Interacting]
     Active Substance: IBUPROFEN
     Dosage: 400 MG
     Route: 048
     Dates: start: 20210406, end: 20210409
  15. CLEXANE [Concomitant]
     Active Substance: ENOXAPARIN SODIUM
     Dates: start: 20210101
  16. RIVOTRIL [Concomitant]
     Active Substance: CLONAZEPAM
     Dates: start: 20201231, end: 20210101
  17. PRIVIGEN [Concomitant]
     Active Substance: HUMAN IMMUNOGLOBULIN G
     Dates: start: 20210310, end: 20210314
  18. FURADANTINE [Concomitant]
     Active Substance: NITROFURANTOIN
     Dates: start: 20210108, end: 20210112
  19. MOVICOL [Concomitant]
     Active Substance: POLYETHYLENE GLYCOL 3350\POTASSIUM CHLORIDE\SODIUM BICARBONATE\SODIUM CHLORIDE
     Dates: start: 20210202, end: 20210202
  20. SOLU?MEDROL [Concomitant]
     Active Substance: METHYLPREDNISOLONE SODIUM SUCCINATE
     Dates: start: 20210107, end: 20210111
  21. NEXIUM [Concomitant]
     Active Substance: ESOMEPRAZOLE MAGNESIUM
     Dates: start: 20210107, end: 20210409
  22. DISTRANEURIN [Concomitant]
     Active Substance: CLOMETHIAZOLE
     Dates: start: 20210107, end: 20210111
  23. PRIVIGEN [Concomitant]
     Active Substance: HUMAN IMMUNOGLOBULIN G
     Dates: start: 20210107, end: 20210111
  24. TEMESTA [Concomitant]
     Dates: start: 20210106, end: 20210112
  25. QUETIAPIN [Suspect]
     Active Substance: QUETIAPINE
     Dosage: AS NECESSARY
     Route: 048
     Dates: start: 20210401
  26. LEVETIRACETAM. [Suspect]
     Active Substance: LEVETIRACETAM
     Dosage: 500 MG
     Route: 048
     Dates: start: 20201230, end: 20210101
  27. TRILEPTAL [Interacting]
     Active Substance: OXCARBAZEPINE
     Dosage: 150 MG
     Route: 048
     Dates: start: 20210114
  28. LAXOBERON [Concomitant]
     Active Substance: SODIUM PICOSULFATE
     Dates: start: 20210125
  29. ASPIRIN CARDIO [Concomitant]
     Active Substance: ASPIRIN
     Dates: start: 20201230, end: 20210108
  30. RIXATHON [Concomitant]
     Active Substance: RITUXIMAB
     Dates: start: 20210122, end: 20210122
  31. PURSANA [Concomitant]
     Active Substance: FIG FRUIT OIL\SORBITOL
     Dates: start: 20210326, end: 20210327

REACTIONS (3)
  - Hepatocellular injury [Not Recovered/Not Resolved]
  - Drug interaction [Recovered/Resolved]
  - Drug interaction [Recovered/Resolved]

NARRATIVE: CASE EVENT DATE: 20210401
